FAERS Safety Report 17761011 (Version 2)
Quarter: 2020Q2

REPORT INFORMATION
  Report Type: Spontaneous
  Country: US (occurrence: US)
  Receive Date: 20200508
  Receipt Date: 20200616
  Transmission Date: 20200714
  Serious: Yes (Other)
  Sender: FDA-Public Use
  Company Number: US-PFIZER INC-2020185202

PATIENT
  Age: 47 Year
  Sex: Female

DRUGS (2)
  1. GABAPENTIN. [Suspect]
     Active Substance: GABAPENTIN
     Indication: PARAESTHESIA
     Dosage: UNK
  2. GABAPENTIN. [Suspect]
     Active Substance: GABAPENTIN
     Indication: SKIN BURNING SENSATION

REACTIONS (3)
  - Off label use [Unknown]
  - Product use in unapproved indication [Unknown]
  - Diarrhoea [Not Recovered/Not Resolved]
